FAERS Safety Report 21610659 (Version 5)
Quarter: 2023Q2

REPORT INFORMATION
  Report Type: Report from Study
  Country: US (occurrence: US)
  Receive Date: 20221117
  Receipt Date: 20230619
  Transmission Date: 20230721
  Serious: Yes (Other)
  Sender: FDA-Public Use
  Company Number: US-ABBVIE-4199297

PATIENT
  Age: 74 Year
  Sex: Female

DRUGS (3)
  1. HUMIRA [Suspect]
     Active Substance: ADALIMUMAB
     Indication: Rheumatoid arthritis
     Route: 058
  2. HUMIRA [Suspect]
     Active Substance: ADALIMUMAB
     Route: 058
  3. HUMIRA [Suspect]
     Active Substance: ADALIMUMAB
     Route: 058

REACTIONS (23)
  - Hiatus hernia [Unknown]
  - Rash [Unknown]
  - Arthralgia [Unknown]
  - Arthralgia [Unknown]
  - Arthritis [Unknown]
  - Mobility decreased [Unknown]
  - Varicose vein [Unknown]
  - Device loosening [Unknown]
  - Thyroid disorder [Unknown]
  - Knee arthroplasty [Unknown]
  - Hernia [Unknown]
  - Cyst [Unknown]
  - Swelling [Unknown]
  - Skin disorder [Unknown]
  - Blood iron decreased [Unknown]
  - Chest pain [Unknown]
  - Dyspepsia [Unknown]
  - Fall [Unknown]
  - Erythema [Unknown]
  - Unevaluable event [Unknown]
  - Incorrect route of product administration [Unknown]
  - Pruritus [Unknown]
  - Pain in extremity [Unknown]

NARRATIVE: CASE EVENT DATE: 20221107
